FAERS Safety Report 12770513 (Version 1)
Quarter: 2016Q3

REPORT INFORMATION
  Report Type: Spontaneous
  Country: US (occurrence: US)
  Receive Date: 20160921
  Receipt Date: 20160921
  Transmission Date: 20161109
  Serious: No
  Sender: FDA-Public Use
  Company Number: None

PATIENT
  Age: 39 Year
  Sex: Female
  Weight: 72 kg

DRUGS (1)
  1. CIPROFLOXACIN. [Suspect]
     Active Substance: CIPROFLOXACIN
     Indication: DECUBITUS ULCER
     Route: 042
     Dates: start: 20160920, end: 20160920

REACTIONS (2)
  - Pruritus [None]
  - Discomfort [None]

NARRATIVE: CASE EVENT DATE: 20160920
